FAERS Safety Report 15306505 (Version 2)
Quarter: 2018Q4

REPORT INFORMATION
  Report Type: Spontaneous
  Country: US (occurrence: US)
  Receive Date: 20180822
  Receipt Date: 20181213
  Transmission Date: 20190204
  Serious: No
  Sender: FDA-Public Use
  Company Number: US-MYLANLABS-2018M1061725

PATIENT
  Sex: Female
  Weight: 54 kg

DRUGS (3)
  1. PRISTIQ EXTENDED-RELEASE [Concomitant]
     Active Substance: DESVENLAFAXINE SUCCINATE
     Indication: PRODUCT USED FOR UNKNOWN INDICATION
     Dosage: UNK
  2. LIDOCAINE. [Suspect]
     Active Substance: LIDOCAINE
     Indication: ARTHRITIS
     Dosage: UNK
     Route: 003
  3. ESTRADIOL                          /00045402/ [Concomitant]
     Indication: PRODUCT USED FOR UNKNOWN INDICATION
     Dosage: UNK

REACTIONS (3)
  - Product quality issue [Unknown]
  - Product adhesion issue [Unknown]
  - Off label use [Unknown]
